FAERS Safety Report 15947869 (Version 1)
Quarter: 2019Q1

REPORT INFORMATION
  Report Type: Spontaneous
  Country: US (occurrence: US)
  Receive Date: 20190211
  Receipt Date: 20190211
  Transmission Date: 20190417
  Serious: No
  Sender: FDA-Public Use
  Company Number: US-PFIZER INC-2018293609

PATIENT
  Age: 4 Year
  Sex: Male
  Weight: 14.97 kg

DRUGS (3)
  1. GENOTROPIN [Suspect]
     Active Substance: SOMATROPIN
     Dosage: UNK
     Dates: start: 201804
  2. GENOTROPIN [Suspect]
     Active Substance: SOMATROPIN
     Dosage: 0.8 MG, 6 DAYS A WEEK
     Dates: start: 20180215
  3. GENOTROPIN [Suspect]
     Active Substance: SOMATROPIN
     Indication: HYPOPITUITARISM
     Dosage: 0.8 MG, ONCE A DAY
     Dates: start: 201802

REACTIONS (6)
  - Blood urea nitrogen/creatinine ratio increased [Unknown]
  - Blood creatinine decreased [Unknown]
  - Blood alkaline phosphatase increased [Unknown]
  - Incorrect dose administered by device [Unknown]
  - Aspartate aminotransferase increased [Unknown]
  - Device issue [Unknown]

NARRATIVE: CASE EVENT DATE: 201805
